FAERS Safety Report 14321851 (Version 1)
Quarter: 2017Q4

REPORT INFORMATION
  Report Type: Spontaneous
  Country: US (occurrence: US)
  Receive Date: 20171224
  Receipt Date: 20171224
  Transmission Date: 20180321
  Serious: No
  Sender: FDA-Public Use
  Company Number: US-ASTRAZENECA-2017SF31338

PATIENT
  Sex: Male

DRUGS (2)
  1. RHINOCORT ALLERGY [Suspect]
     Active Substance: BUDESONIDE
     Indication: NASOPHARYNGITIS
     Dosage: 1 TO 2 SPRAYS ONE TIME PER DAY
     Route: 045
  2. RHINOCORT ALLERGY [Suspect]
     Active Substance: BUDESONIDE
     Indication: MULTIPLE ALLERGIES
     Dosage: 1 TO 2 SPRAYS ONE TIME PER DAY
     Route: 045

REACTIONS (3)
  - Ageusia [Unknown]
  - Anosmia [Unknown]
  - Product use in unapproved indication [Unknown]
